FAERS Safety Report 9921821 (Version 1)
Quarter: 2014Q1

REPORT INFORMATION
  Report Type: Spontaneous
  Country: US (occurrence: US)
  Receive Date: 20140225
  Receipt Date: 20140225
  Transmission Date: 20141002
  Serious: No
  Sender: FDA-Public Use
  Company Number: US-BAYER-2014-029190

PATIENT
  Age: 62 Year
  Sex: Female

DRUGS (4)
  1. ALEVE CAPLET [Suspect]
     Indication: ANALGESIC THERAPY
     Dosage: 2 DF, QD
     Route: 048
     Dates: start: 20140207
  2. ALEVE CAPLET [Suspect]
     Indication: PAIN
  3. TEMAZEPAM [Concomitant]
  4. PRISTIQ [Concomitant]

REACTIONS (1)
  - Incorrect drug administration duration [None]
